FAERS Safety Report 8799652 (Version 2)
Quarter: 2012Q4

REPORT INFORMATION
  Report Type: 
  Country: US (occurrence: US)
  Receive Date: 20120919
  Receipt Date: 20121119
  Transmission Date: 20130627
  Serious: Yes (Hospitalization, Other)
  Sender: FDA-Public Use
  Company Number: US-TEVA-359413USA

PATIENT
  Sex: Female

DRUGS (4)
  1. PANTOPRAZOLE [Suspect]
     Indication: ERUCTATION
     Dosage: 40 Milligram Daily;
     Dates: end: 201209
  2. METOPROLOL [Concomitant]
     Indication: HYPERTENSION
     Dosage: 100 Milligram Daily;
  3. ASA [Concomitant]
     Dosage: 81 Milligram Daily;
  4. AMLODIPINE [Concomitant]
     Indication: HYPERTENSION

REACTIONS (3)
  - Loss of consciousness [Unknown]
  - Convulsion [Unknown]
  - Drug ineffective [Unknown]
